FAERS Safety Report 7947920-9 (Version None)
Quarter: 2011Q4

REPORT INFORMATION
  Report Type: 
  Country: None (occurrence: None)
  Receive Date: 20111121
  Receipt Date: 20111107
  Transmission Date: 20120403
  Serious: Yes (Hospitalization)
  Sender: FDA-Public Use
  Company Number: 2011SP052373

PATIENT
  Age: 73 Year
  Sex: Female

DRUGS (3)
  1. PREDNISONE TAB [Concomitant]
  2. PROVENTIL-HFA [Suspect]
     Indication: PRODUCT USED FOR UNKNOWN INDICATION
     Dosage: ; INH
     Route: 055
  3. ADVAIR DISKUS 100/50 [Concomitant]

REACTIONS (4)
  - ATRIAL FIBRILLATION [None]
  - CHEST PAIN [None]
  - HEART RATE INCREASED [None]
  - ARRHYTHMIA [None]
